FAERS Safety Report 17170358 (Version 1)
Quarter: 2019Q4

REPORT INFORMATION
  Report Type: Spontaneous
  Country: SE (occurrence: SE)
  Receive Date: 20191218
  Receipt Date: 20191218
  Transmission Date: 20200122
  Serious: Yes (Hospitalization)
  Sender: FDA-Public Use
  Company Number: SE-PFIZER INC-2019540886

PATIENT
  Sex: Female

DRUGS (4)
  1. RISPERIDONE. [Suspect]
     Active Substance: RISPERIDONE
     Dosage: 11 MG, UNK
     Route: 048
     Dates: start: 20180706, end: 20180706
  2. PROPAVAN [Suspect]
     Active Substance: PROPIOMAZINE
     Dosage: 300 MG, UNK
     Route: 048
     Dates: start: 20180706, end: 20180706
  3. VENLAFAXINE HCL [Suspect]
     Active Substance: VENLAFAXINE HYDROCHLORIDE
     Dosage: 375 MG, UNK
     Route: 048
     Dates: start: 20180706, end: 20180706
  4. FOLACIN [FOLIC ACID] [Suspect]
     Active Substance: FOLIC ACID
     Dosage: 10 MG, UNK
     Route: 048
     Dates: start: 20180706, end: 20180706

REACTIONS (3)
  - Disorientation [Unknown]
  - Intentional self-injury [Unknown]
  - Intentional overdose [Unknown]

NARRATIVE: CASE EVENT DATE: 201807
